FAERS Safety Report 10752809 (Version 4)
Quarter: 2016Q1

REPORT INFORMATION
  Report Type: Report from Study
  Country: IT (occurrence: IT)
  Receive Date: 20150130
  Receipt Date: 20160215
  Transmission Date: 20160525
  Serious: Yes (Disabling)
  Sender: FDA-Public Use
  Company Number: IT-009507513-1308ITA001691

PATIENT
  Age: 59 Year
  Sex: Female
  Weight: 70 kg

DRUGS (7)
  1. PEMBROLIZUMAB. [Suspect]
     Active Substance: PEMBROLIZUMAB
     Dosage: 2 MG/KG, Q3W
     Route: 042
     Dates: start: 20130710, end: 20130710
  2. EUTIROX [Concomitant]
     Active Substance: LEVOTHYROXINE SODIUM
     Indication: HYPOTHYROIDISM
     Dosage: 100 MICROGRAM, QD
     Route: 048
     Dates: start: 20130422
  3. CRESTOR [Concomitant]
     Active Substance: ROSUVASTATIN CALCIUM
     Indication: HYPERCHOLESTEROLAEMIA
     Dosage: 10 MG, QD
     Route: 048
     Dates: start: 201001
  4. CETIRIZINE HYDROCHLORIDE. [Concomitant]
     Active Substance: CETIRIZINE HYDROCHLORIDE
     Indication: PREMEDICATION
     Dosage: 10 MG, ONCE
     Route: 048
     Dates: start: 20130710, end: 20130710
  5. PEMBROLIZUMAB. [Suspect]
     Active Substance: PEMBROLIZUMAB
     Indication: MALIGNANT MELANOMA
     Dosage: 2 MG/KG, Q3W
     Route: 042
     Dates: start: 20130529, end: 20130619
  6. LOBIVON [Concomitant]
     Active Substance: NEBIVOLOL HYDROCHLORIDE
     Indication: HYPERTENSION
     Dosage: 2.5 MG, QD
     Route: 048
     Dates: start: 20030101
  7. NORVASC [Concomitant]
     Active Substance: AMLODIPINE BESYLATE
     Indication: HYPERTENSION
     Dosage: 5 MG, QD
     Route: 048
     Dates: start: 200301

REACTIONS (1)
  - Generalised oedema [Recovered/Resolved]

NARRATIVE: CASE EVENT DATE: 20130715
